FAERS Safety Report 20651780 (Version 1)
Quarter: 2022Q1

REPORT INFORMATION
  Report Type: Report from Study
  Country: CO (occurrence: CO)
  Receive Date: 20220330
  Receipt Date: 20220330
  Transmission Date: 20220423
  Serious: Yes (Hospitalization, Disabling)
  Sender: FDA-Public Use
  Company Number: CO-ABBVIE-22K-036-4336042-00

PATIENT
  Sex: Male
  Weight: 78 kg

DRUGS (2)
  1. HUMIRA [Suspect]
     Active Substance: ADALIMUMAB
     Indication: Psoriasis
     Route: 058
     Dates: end: 20220225
  2. HUMIRA [Suspect]
     Active Substance: ADALIMUMAB
     Indication: Psoriasis
     Route: 058
     Dates: start: 20120901

REACTIONS (11)
  - Limb traumatic amputation [Recovered/Resolved]
  - Skin laceration [Recovered/Resolved]
  - Inflammation of wound [Recovered/Resolved]
  - Purulence [Recovered/Resolved]
  - Rash [Recovered/Resolved]
  - Infection [Recovered/Resolved]
  - Inappropriate schedule of product administration [Not Recovered/Not Resolved]
  - Accident at work [Unknown]
  - Acne [Unknown]
  - Acne pustular [Unknown]
  - Helminthic infection [Unknown]

NARRATIVE: CASE EVENT DATE: 20210101
